FAERS Safety Report 8203672-9 (Version None)
Quarter: 2012Q1

REPORT INFORMATION
  Report Type: 
  Country: None (occurrence: None)
  Receive Date: 20120308
  Receipt Date: 20120222
  Transmission Date: 20120608
  Serious: Yes (Hospitalization)
  Sender: FDA-Public Use
  Company Number: 2011SGN00285

PATIENT
  Age: 19 Year
  Sex: Female

DRUGS (1)
  1. ADCETRIS [Suspect]
     Indication: HODGKIN'S DISEASE
     Dosage: 111 MG, Q21D
     Dates: start: 20110927, end: 20110927

REACTIONS (3)
  - THROMBOCYTOPENIA [None]
  - PANCYTOPENIA [None]
  - BONE PAIN [None]
